FAERS Safety Report 14485802 (Version 1)
Quarter: 2018Q1

REPORT INFORMATION
  Report Type: Spontaneous
  Country: US (occurrence: US)
  Receive Date: 20180203
  Receipt Date: 20180203
  Transmission Date: 20180509
  Serious: No
  Sender: FDA-Public Use
  Company Number: None

PATIENT
  Age: 49 Year
  Sex: Female

DRUGS (2)
  1. HUMIRA [Suspect]
     Active Substance: ADALIMUMAB
     Indication: CROHN^S DISEASE
     Route: 058
     Dates: start: 20170703
  2. HUMIRA [Suspect]
     Active Substance: ADALIMUMAB
     Indication: ATHEROEMBOLISM
     Route: 058
     Dates: start: 20170703

REACTIONS (4)
  - Dry eye [None]
  - Lacrimation increased [None]
  - Drug intolerance [None]
  - Unevaluable event [None]

NARRATIVE: CASE EVENT DATE: 20180201
